FAERS Safety Report 9982388 (Version 1)
Quarter: 2014Q1

REPORT INFORMATION
  Report Type: Report from Study
  Country: US (occurrence: US)
  Receive Date: 20140307
  Receipt Date: 20140307
  Transmission Date: 20141002
  Serious: No
  Sender: FDA-Public Use
  Company Number: US-ABBVIE-13P-163-1179637-00

PATIENT
  Age: 27 Year
  Sex: Female

DRUGS (7)
  1. HUMIRA [Suspect]
     Indication: CROHN^S DISEASE
     Dates: start: 20131030
  2. PREDNISONE [Concomitant]
     Indication: CROHN^S DISEASE
     Dosage: TAPERING DOSE
  3. IMURAN [Concomitant]
     Indication: CROHN^S DISEASE
  4. ZYRTEC [Concomitant]
     Indication: HYPERSENSITIVITY
  5. PRILOSEC [Concomitant]
     Indication: GASTROOESOPHAGEAL REFLUX DISEASE
     Dosage: TAPERING DOSE
  6. PRILOSEC [Concomitant]
  7. CONTRACEPTIVES [Concomitant]
     Indication: CONTRACEPTION

REACTIONS (2)
  - Injection site bruising [Not Recovered/Not Resolved]
  - Injection site pain [Not Recovered/Not Resolved]
